FAERS Safety Report 6649417-5 (Version None)
Quarter: 2010Q1

REPORT INFORMATION
  Report Type: 
  Country: None (occurrence: None)
  Receive Date: 20100322
  Receipt Date: 20100309
  Transmission Date: 20100710
  Serious: Yes (Other)
  Sender: FDA-Public Use
  Company Number: 237476K09USA

PATIENT
  Age: 49 Year
  Sex: Female
  Weight: 64 kg

DRUGS (1)
  1. REBIF [Suspect]
     Indication: MULTIPLE SCLEROSIS
     Dosage: 44 MCG, 1 IN 2 DAYS, SUBCUTANEOUS
     Route: 057
     Dates: start: 20070701

REACTIONS (3)
  - CARDIOSPASM [None]
  - CHEST DISCOMFORT [None]
  - PNEUMOTHORAX [None]
